FAERS Safety Report 5902661-4 (Version None)
Quarter: 2008Q3

REPORT INFORMATION
  Report Type: 
  Country: None (occurrence: None)
  Receive Date: 20080930
  Receipt Date: 20080918
  Transmission Date: 20090109
  Serious: Yes (Hospitalization, Other)
  Sender: FDA-Public Use
  Company Number: GB-RANBAXY-2008RR-17541

PATIENT
  Age: 30 Year
  Sex: Female
  Weight: 72 kg

DRUGS (20)
  1. ACETAMINOPHEN [Suspect]
     Indication: PAIN
     Route: 065
  2. CHLORPHENIRAMINE MALEATE [Suspect]
     Indication: PRURITUS
     Route: 042
  3. CYCLOSPORINE [Suspect]
     Route: 048
  4. DEXAMETHASONE [Suspect]
     Indication: MATERNAL THERAPY TO ENHANCE FOETAL LUNG MATURITY
     Route: 048
  5. GENTAMICIN [Suspect]
     Route: 042
  6. METRONIDAZOLE [Suspect]
     Route: 042
  7. MORPHINE [Suspect]
     Indication: PAIN
     Route: 042
  8. CALCIUM CHLORIDE DIHYDRATE [Suspect]
     Indication: DRUG USE FOR UNKNOWN INDICATION
     Route: 042
  9. POTASSIUM CHLORIDE [Suspect]
     Indication: DRUG USE FOR UNKNOWN INDICATION
     Route: 042
  10. SODIUM CHLORIDE 0.9% [Suspect]
     Indication: DRUG USE FOR UNKNOWN INDICATION
     Route: 042
  11. SODIUM LACTATE [Suspect]
     Indication: DRUG USE FOR UNKNOWN INDICATION
     Route: 042
  12. RANITIDINE [Concomitant]
     Route: 042
  13. METOCLOPRAMIDE [Concomitant]
  14. LINEZOLID [Concomitant]
     Dosage: 600 MG, UNK
  15. ENOXAPARIN SODIUM [Concomitant]
     Indication: THROMBOSIS PROPHYLAXIS
     Route: 058
  16. SUXAMETHONIUM [Concomitant]
     Indication: ANAESTHESIA
  17. SEVOFLURANE [Concomitant]
     Indication: ANAESTHESIA
  18. TIOPENTHAL [Concomitant]
     Indication: ANAESTHESIA
  19. SODIUM CITRATE [Concomitant]
     Route: 048
  20. NITROUS OXIDE [Concomitant]
     Indication: ANAESTHESIA

REACTIONS (23)
  - ANXIETY [None]
  - ARTHRALGIA [None]
  - BLOOD ALBUMIN INCREASED [None]
  - CAESAREAN SECTION [None]
  - CALCIUM IONISED INCREASED [None]
  - CONDITION AGGRAVATED [None]
  - DRUG EXPOSURE DURING PREGNANCY [None]
  - DRUG INEFFECTIVE [None]
  - EYELID OEDEMA [None]
  - FACE OEDEMA [None]
  - GENERAL PHYSICAL HEALTH DETERIORATION [None]
  - GENERALISED OEDEMA [None]
  - HAEMOGLOBIN DECREASED [None]
  - HYPOPHAGIA [None]
  - INSOMNIA [None]
  - IRRITABILITY [None]
  - LARYNGEAL OEDEMA [None]
  - NEUTROPHILIA [None]
  - PREMATURE LABOUR [None]
  - PRURITUS [None]
  - PUSTULAR PSORIASIS [None]
  - PYREXIA [None]
  - SOMNOLENCE [None]
